FAERS Safety Report 7660875-X (Version None)
Quarter: 2011Q3

REPORT INFORMATION
  Report Type: 
  Country: None (occurrence: None)
  Receive Date: 20110805
  Receipt Date: 20101108
  Transmission Date: 20111222
  Serious: No
  Sender: FDA-Public Use
  Company Number: US-ABBOTT-10P-163-0684604-00

PATIENT
  Sex: Female
  Weight: 58.112 kg

DRUGS (6)
  1. SIMVASTATIN [Concomitant]
     Indication: BLOOD CHOLESTEROL INCREASED
  2. BYSTOLIC [Concomitant]
     Indication: HEART RATE IRREGULAR
  3. AMLODIPINE [Concomitant]
     Indication: HYPERTENSION
  4. NIASPAN [Suspect]
     Indication: BLOOD TRIGLYCERIDES INCREASED
  5. NIASPAN [Suspect]
     Indication: HIGH DENSITY LIPOPROTEIN DECREASED
  6. NIASPAN [Suspect]
     Indication: BLOOD CHOLESTEROL INCREASED
     Dates: start: 20101027, end: 20101108

REACTIONS (7)
  - DIZZINESS [None]
  - FLUSHING [None]
  - PRURITUS [None]
  - BLOOD PRESSURE DECREASED [None]
  - PARAESTHESIA [None]
  - FEELING ABNORMAL [None]
  - LOSS OF CONTROL OF LEGS [None]
